FAERS Safety Report 17389257 (Version 1)
Quarter: 2020Q1

REPORT INFORMATION
  Report Type: Spontaneous
  Country: GB (occurrence: GB)
  Receive Date: 20200207
  Receipt Date: 20200207
  Transmission Date: 20200409
  Serious: Yes (Other)
  Sender: FDA-Public Use
  Company Number: GB-BAYER-2020-017249

PATIENT
  Age: 13 Year
  Sex: Male

DRUGS (2)
  1. NEXAVAR [Suspect]
     Active Substance: SORAFENIB
     Indication: THYROID CANCER
     Dosage: 150MG/M2 (200 MG) ONCE A DAY
     Route: 048
     Dates: start: 20200117
  2. NEXAVAR [Suspect]
     Active Substance: SORAFENIB
     Indication: THYROID CANCER
     Dosage: 200 MG, BID
     Route: 048
     Dates: start: 20200122, end: 20200125

REACTIONS (5)
  - Malaise [None]
  - Product use issue [None]
  - Ejection fraction decreased [None]
  - Troponin increased [None]
  - Off label use [None]
